FAERS Safety Report 18043366 (Version 2)
Quarter: 2020Q3

REPORT INFORMATION
  Report Type: Spontaneous
  Country: US (occurrence: US)
  Receive Date: 20200720
  Receipt Date: 20200924
  Transmission Date: 20201103
  Serious: Yes (Other)
  Sender: FDA-Public Use
  Company Number: US-BAYER-2020-145541

PATIENT
  Age: 20 Year
  Sex: Female

DRUGS (1)
  1. SKYLA [Suspect]
     Active Substance: LEVONORGESTREL
     Indication: CONTRACEPTION
     Dosage: 14 ?G PER DAY, CONTINUOUSLY
     Route: 015
     Dates: start: 20180207

REACTIONS (4)
  - Device dislocation [Recovered/Resolved]
  - Abdominal pain lower [None]
  - Genital haemorrhage [None]
  - Pelvic pain [None]

NARRATIVE: CASE EVENT DATE: 20200706
